FAERS Safety Report 12500959 (Version 1)
Quarter: 2016Q2

REPORT INFORMATION
  Report Type: Report from Study
  Country: CA (occurrence: CA)
  Receive Date: 20160627
  Receipt Date: 20160627
  Transmission Date: 20160815
  Serious: Yes (Other)
  Sender: FDA-Public Use
  Company Number: CA-JNJFOC-20160621320

PATIENT
  Age: 34 Year
  Sex: Female
  Weight: 60 kg

DRUGS (5)
  1. OMEGA III [Concomitant]
     Dosage: EXTRA STRENGTH
     Route: 065
  2. REMICADE [Suspect]
     Active Substance: INFLIXIMAB
     Indication: PRODUCT USED FOR UNKNOWN INDICATION
     Route: 042
  3. EURO D [Concomitant]
     Dosage: 10000 (UNSPECIFIED UNITS)
     Route: 065
  4. PURINETHOL [Concomitant]
     Active Substance: MERCAPTOPURINE
     Route: 065
  5. REACTINE [Concomitant]
     Active Substance: CETIRIZINE HYDROCHLORIDE
     Dosage: EXTRA STRENGTH
     Route: 065

REACTIONS (1)
  - Ear infection fungal [Unknown]

NARRATIVE: CASE EVENT DATE: 20160515
